FAERS Safety Report 5763916-X (Version None)
Quarter: 2008Q2

REPORT INFORMATION
  Report Type: 
  Country: None (occurrence: None)
  Receive Date: 20080606
  Receipt Date: 20080606
  Transmission Date: 20081010
  Serious: Yes (Hospitalization)
  Sender: FDA-Public Use
  Company Number: None

PATIENT
  Sex: Male
  Weight: 97.5234 kg

DRUGS (1)
  1. DIGITEK 0.25MG BERTEK [Suspect]
     Dosage: 1 TABLET DAILY PO
     Route: 048
     Dates: start: 19990101, end: 20080424

REACTIONS (1)
  - ATRIAL FIBRILLATION [None]
